FAERS Safety Report 8803010 (Version 1)
Quarter: 2012Q4

REPORT INFORMATION
  Report Type: 
  Country: US (occurrence: US)
  Receive Date: 20120924
  Receipt Date: 20120924
  Transmission Date: 20130627
  Serious: No
  Sender: FDA-Public Use
  Company Number: US-JNJFOC-20120905105

PATIENT
  Sex: Male
  Weight: 104.33 kg

DRUGS (6)
  1. DURAGESIC [Suspect]
     Indication: NECK INJURY
     Route: 062
     Dates: end: 2012
  2. DURAGESIC [Suspect]
     Indication: BACK DISORDER
     Route: 062
     Dates: end: 2012
  3. FENTANYL TRANSDERMAL SYSTEM [Suspect]
     Indication: NECK INJURY
     Route: 062
     Dates: start: 2012, end: 2012
  4. FENTANYL TRANSDERMAL SYSTEM [Suspect]
     Indication: BACK DISORDER
     Route: 062
     Dates: start: 2012, end: 2012
  5. DURAGESIC [Suspect]
     Indication: NECK INJURY
     Route: 062
     Dates: start: 2012
  6. DURAGESIC [Suspect]
     Indication: BACK DISORDER
     Route: 062
     Dates: start: 2012

REACTIONS (6)
  - Hyperhidrosis [Unknown]
  - Product quality issue [Unknown]
  - Wrong technique in drug usage process [Not Recovered/Not Resolved]
  - Application site irritation [Unknown]
  - Application site discolouration [Unknown]
  - Drug administered at inappropriate site [Unknown]
